FAERS Safety Report 24677869 (Version 2)
Quarter: 2025Q3

REPORT INFORMATION
  Report Type: Spontaneous
  Country: EU (occurrence: EU)
  Receive Date: 20241129
  Receipt Date: 20250810
  Transmission Date: 20251020
  Serious: Yes (Life-Threatening, Disabling, Other)
  Sender: ALEXION PHARMACEUTICALS
  Company Number: EU-BRISTOL-MYERS SQUIBB COMPANY-2024- 074129

PATIENT
  Age: 33 Year
  Sex: Female
  Weight: 86 kg

DRUGS (14)
  1. NEXIUM [Suspect]
     Active Substance: ESOMEPRAZOLE MAGNESIUM
     Indication: Gastrointestinal disorder
  2. NEXIUM [Suspect]
     Active Substance: ESOMEPRAZOLE MAGNESIUM
     Indication: Gastrointestinal disorder
  3. ELIQUIS [Suspect]
     Active Substance: APIXABAN
     Indication: Thrombosis
     Route: 065
  4. ELIQUIS [Suspect]
     Active Substance: APIXABAN
     Indication: Phlebitis
  5. LYRICA [Suspect]
     Active Substance: PREGABALIN
     Indication: Facial pain
  6. LYRICA [Suspect]
     Active Substance: PREGABALIN
  7. RIVOTRIL [Suspect]
     Active Substance: CLONAZEPAM
     Indication: Facial pain
  8. RIVOTRIL [Suspect]
     Active Substance: CLONAZEPAM
  9. TRAMADOL [Concomitant]
     Active Substance: TRAMADOL
     Indication: Pain
  10. TRAMADOL [Concomitant]
     Active Substance: TRAMADOL
  11. TEMESTA [Concomitant]
     Indication: Insomnia
  12. TEMESTA [Concomitant]
  13. DESOBEL [Concomitant]
     Indication: Menstruation delayed
  14. DESOBEL [Concomitant]
     Dosage: 30 MILLIGRAM

REACTIONS (6)
  - Phlebitis [Not Recovered/Not Resolved]
  - Thrombosis [Not Recovered/Not Resolved]
  - Intervertebral disc protrusion [Unknown]
  - Staphylococcal infection [Unknown]
  - Staphylococcal infection [Unknown]
  - Arthropathy [Unknown]

NARRATIVE: CASE EVENT DATE: 20231012
